FAERS Safety Report 5773965-3 (Version None)
Quarter: 2008Q2

REPORT INFORMATION
  Report Type: 
  Country: None (occurrence: None)
  Receive Date: 20080616
  Receipt Date: 20080603
  Transmission Date: 20081010
  Serious: Yes (Life-Threatening, Hospitalization)
  Sender: FDA-Public Use
  Company Number: CH-TEVA-162595ISR

PATIENT
  Sex: Male

DRUGS (45)
  1. CISPLATIN [Suspect]
     Indication: SMALL CELL LUNG CANCER STAGE UNSPECIFIED
     Route: 042
     Dates: start: 20070508, end: 20070508
  2. CISPLATIN [Suspect]
     Route: 042
     Dates: start: 20070531, end: 20070531
  3. IRINOTECAN HCL [Suspect]
     Indication: SMALL CELL LUNG CANCER STAGE UNSPECIFIED
     Route: 042
     Dates: start: 20070508
  4. IRINOTECAN HCL [Suspect]
     Route: 042
     Dates: start: 20070531, end: 20070531
  5. IRINOTECAN HCL [Suspect]
     Route: 042
     Dates: start: 20070615, end: 20070615
  6. FOSICOMP (FOSINOPRIL SODIUM, HYDROCHLOROTHIAZIDE) [Concomitant]
     Route: 048
     Dates: start: 20040101
  7. DEXAMETHASONE TAB [Concomitant]
     Route: 048
     Dates: start: 20070503
  8. ESOMEPRAZOLE MAGNESIUM [Concomitant]
     Route: 048
     Dates: start: 20070514, end: 20070514
  9. ESOMEPRAZOLE MAGNESIUM [Concomitant]
     Route: 042
     Dates: start: 20070515, end: 20070517
  10. ESOMEPRAZOLE MAGNESIUM [Concomitant]
     Route: 048
     Dates: start: 20070518, end: 20070609
  11. ESOMEPRAZOLE MAGNESIUM [Concomitant]
     Route: 042
     Dates: start: 20070615, end: 20070621
  12. ESOMEPRAZOLE MAGNESIUM [Concomitant]
     Route: 048
     Dates: start: 20070622
  13. HALOPERIDOL [Concomitant]
     Route: 048
     Dates: start: 20070513, end: 20070514
  14. HALOPERIDOL [Concomitant]
     Route: 042
     Dates: start: 20070514, end: 20070514
  15. HALOPERIDOL [Concomitant]
     Route: 048
     Dates: start: 20070518, end: 20070530
  16. HALOPERIDOL [Concomitant]
     Route: 042
     Dates: start: 20070608, end: 20070616
  17. HALOPERIDOL [Concomitant]
     Route: 048
     Dates: start: 20070620
  18. AMIODARONE HCL [Concomitant]
     Route: 048
     Dates: start: 20070515, end: 20070519
  19. AMIODARONE HCL [Concomitant]
     Route: 048
     Dates: start: 20070519, end: 20070609
  20. ALBUTEROL [Concomitant]
     Route: 055
  21. IPRATROPIUM BROMIDE [Concomitant]
     Route: 055
     Dates: start: 20070514, end: 20070527
  22. FAMCICLOVIR [Concomitant]
     Route: 048
     Dates: start: 20070523, end: 20070527
  23. LEVOMEPROMAZINE [Concomitant]
     Route: 048
     Dates: start: 20070529, end: 20070609
  24. FUROSEMIDE [Concomitant]
     Route: 042
     Dates: start: 20070527
  25. FUROSEMIDE [Concomitant]
     Route: 048
     Dates: start: 20070528
  26. FUROSEMIDE [Concomitant]
     Route: 042
     Dates: start: 20070601, end: 20070621
  27. FUROSEMIDE [Concomitant]
     Route: 048
     Dates: start: 20070622
  28. DEXAMETHASONE TAB [Concomitant]
     Route: 042
     Dates: start: 20070601, end: 20070604
  29. BENAZEPRIL HYDROCHLORIDE [Concomitant]
     Route: 048
     Dates: start: 20070609, end: 20070610
  30. LORAZEPAM [Concomitant]
     Route: 048
     Dates: start: 20070604, end: 20070604
  31. METOCLOPRAMIDE [Concomitant]
     Route: 042
     Dates: start: 20070606, end: 20070616
  32. PRIMAXIN [Concomitant]
     Route: 042
     Dates: start: 20070606, end: 20070616
  33. AMPHOTERICIN B [Concomitant]
     Route: 042
     Dates: start: 20070606
  34. PETHIDINE [Concomitant]
     Route: 042
     Dates: start: 20070606
  35. PREDNISONE TAB [Concomitant]
     Route: 042
     Dates: start: 20070606
  36. STARCH [Concomitant]
     Route: 042
     Dates: start: 20070605, end: 20070605
  37. STARCH [Concomitant]
     Route: 042
     Dates: start: 20070607, end: 20070607
  38. FILGRASTIM [Concomitant]
     Route: 042
     Dates: start: 20070607, end: 20070609
  39. MORPHINE [Concomitant]
     Route: 042
     Dates: start: 20070604, end: 20070604
  40. NADROPARIN CALCIUM [Concomitant]
     Route: 042
     Dates: start: 20070604, end: 20070604
  41. POTASSIUM CHLORIDE [Concomitant]
     Route: 042
     Dates: start: 20070610, end: 20070615
  42. RED BLOOD CELLS [Concomitant]
     Route: 042
     Dates: start: 20070607, end: 20070607
  43. FLAVOXATE HCL [Concomitant]
     Route: 048
     Dates: start: 20070620
  44. CIPROFLOXACIN [Concomitant]
     Route: 048
     Dates: start: 20070620
  45. SERETIDE [Concomitant]
     Route: 055
     Dates: start: 20070622

REACTIONS (1)
  - OEDEMA PERIPHERAL [None]
